FAERS Safety Report 4449115-2 (Version None)
Quarter: 2004Q3

REPORT INFORMATION
  Report Type: 
  Country: None (occurrence: None)
  Receive Date: 20040910
  Receipt Date: 20040826
  Transmission Date: 20050211
  Serious: Yes (Death)
  Sender: FDA-Public Use
  Company Number: 2004230243JP

PATIENT
  Age: 64 Year
  Sex: Male

DRUGS (7)
  1. CAMPTOSAR [Suspect]
     Indication: COLON CANCER
     Dosage: SEE IMAGE
     Route: 041
     Dates: start: 20040608, end: 20040608
  2. CAMPTOSAR [Suspect]
     Indication: COLON CANCER
     Dosage: SEE IMAGE
     Route: 041
     Dates: start: 20040615, end: 20040615
  3. DECADRON [Concomitant]
  4. KYTRIL [Concomitant]
  5. FLUMARIN (FLOMOXEF SODIUM) [Concomitant]
  6. CEPHARANTHIN (CEPHARANTHINE) [Concomitant]
  7. GRAN [Concomitant]

REACTIONS (8)
  - ANAEMIA [None]
  - BONE MARROW DEPRESSION [None]
  - CHILLS [None]
  - LEUKOPENIA [None]
  - PYREXIA [None]
  - THROMBOCYTOPENIA [None]
  - TUMOUR HAEMORRHAGE [None]
  - URINE OUTPUT DECREASED [None]
